FAERS Safety Report 23262803 (Version 1)
Quarter: 2023Q4

REPORT INFORMATION
  Report Type: Spontaneous
  Country: US (occurrence: None)
  Receive Date: 20231204
  Receipt Date: 20231204
  Transmission Date: 20240110
  Serious: Yes (Other)
  Sender: FDA-Public Use
  Company Number: None

PATIENT
  Age: 70 Year
  Sex: Female
  Weight: 81 kg

DRUGS (1)
  1. REPATHA [Suspect]
     Active Substance: EVOLOCUMAB
     Indication: Hypercholesterolaemia
     Dosage: OTHER FREQUENCY : TWICE PER MONTH;?
     Dates: start: 20231002, end: 20231015

REACTIONS (4)
  - Constipation [None]
  - Pyrexia [None]
  - Blood triglycerides increased [None]
  - Injection related reaction [None]

NARRATIVE: CASE EVENT DATE: 20231002
